FAERS Safety Report 25316753 (Version 2)
Quarter: 2025Q3

REPORT INFORMATION
  Report Type: Report from Study
  Country: US (occurrence: US)
  Receive Date: 20250515
  Receipt Date: 20250923
  Transmission Date: 20251021
  Serious: Yes (Hospitalization)
  Sender: TAKEDA
  Company Number: US-TAKEDA-US201934603

PATIENT
  Age: 57 Year
  Sex: Male
  Weight: 108 kg

DRUGS (21)
  1. LANADELUMAB [Suspect]
     Active Substance: LANADELUMAB
     Indication: Immune system disorder
     Dosage: 300 MILLIGRAM, Q2WEEKS
     Dates: start: 20191010
  2. LANADELUMAB [Suspect]
     Active Substance: LANADELUMAB
     Indication: Hereditary angioedema
     Dosage: 300 MILLIGRAM, Q2WEEKS
     Dates: start: 20200311
  3. LANADELUMAB [Suspect]
     Active Substance: LANADELUMAB
     Dosage: 300 MILLIGRAM, Q2WEEKS
     Dates: start: 20210119
  4. LANADELUMAB [Suspect]
     Active Substance: LANADELUMAB
     Dosage: UNK, Q4WEEKS
  5. CANDESARTAN CILEXETIL [Concomitant]
     Active Substance: CANDESARTAN CILEXETIL
  6. VITAMIN B12 [Concomitant]
     Active Substance: CYANOCOBALAMIN
  7. VITAMIN D2 [Concomitant]
     Active Substance: ERGOCALCIFEROL
  8. STERILE WATER [Concomitant]
     Active Substance: WATER
  9. EPINEPHRINE [Concomitant]
     Active Substance: EPINEPHRINE
  10. RUCONEST [Concomitant]
     Active Substance: CONESTAT ALFA
  11. TADALAFIL [Concomitant]
     Active Substance: TADALAFIL
  12. PRISTIQ EXTENDED-RELEASE [Concomitant]
     Active Substance: DESVENLAFAXINE SUCCINATE
  13. SODIUM CHLORIDE [Concomitant]
     Active Substance: SODIUM CHLORIDE
  14. BISOPROLOL FUMARATE [Concomitant]
     Active Substance: BISOPROLOL FUMARATE
  15. ESOMEPRAZOLE MAGNESIUM [Concomitant]
     Active Substance: ESOMEPRAZOLE MAGNESIUM
  16. ENTRESTO [Concomitant]
     Active Substance: SACUBITRIL\VALSARTAN
  17. ELIQUIS [Concomitant]
     Active Substance: APIXABAN
  18. VITAMIN D [Concomitant]
     Active Substance: VITAMIN D NOS
  19. METOPROLOL SUCCINATE [Concomitant]
     Active Substance: METOPROLOL SUCCINATE
  20. FARXIGA [Concomitant]
     Active Substance: DAPAGLIFLOZIN PROPANEDIOL
  21. OZEMPIC [Concomitant]
     Active Substance: SEMAGLUTIDE

REACTIONS (6)
  - Cardiac function test [Unknown]
  - Product dose omission issue [Unknown]
  - Off label use [Unknown]
  - Hereditary angioedema [Unknown]
  - Injection site induration [Recovered/Resolved]
  - Injection site pain [Recovered/Resolved]

NARRATIVE: CASE EVENT DATE: 20191010
